FAERS Safety Report 4335395-0 (Version None)
Quarter: 2004Q2

REPORT INFORMATION
  Report Type: 
  Country: None (occurrence: None)
  Receive Date: 20040406
  Receipt Date: 20040114
  Transmission Date: 20050107
  Serious: No
  Sender: FDA-Public Use
  Company Number: 2004UW06116

PATIENT
  Age: 13 Year
  Sex: Female

DRUGS (5)
  1. SEROQUEL [Suspect]
     Dates: start: 19990929, end: 20000105
  2. DEPAKOTE [Suspect]
     Dates: start: 19990706, end: 20000124
  3. LITHIUM [Suspect]
     Dates: start: 19991006, end: 20000124
  4. LOXITANE [Suspect]
     Dates: start: 19990927, end: 20000105
  5. RISPERDAL [Suspect]
     Dates: start: 19991217, end: 20000124

REACTIONS (4)
  - CONJUNCTIVITIS [None]
  - GRANULOCYTOPENIA [None]
  - NEUROLEPTIC MALIGNANT SYNDROME [None]
  - POLYURIA [None]
